FAERS Safety Report 25988032 (Version 1)
Quarter: 2025Q4

REPORT INFORMATION
  Report Type: Spontaneous
  Country: US (occurrence: US)
  Receive Date: 20251103
  Receipt Date: 20251103
  Transmission Date: 20260117
  Serious: Yes (Other)
  Sender: RADIUS PHARM
  Company Number: US-RADIUS HEALTH INC.-US-RADIUS-25056089

PATIENT
  Age: 75 Year
  Sex: Female

DRUGS (1)
  1. TYMLOS [Suspect]
     Active Substance: ABALOPARATIDE
     Indication: Product used for unknown indication
     Dosage: 80 MICROGRAM, QD
     Route: 058

REACTIONS (11)
  - Fall [Unknown]
  - Fracture [Unknown]
  - Colitis [Unknown]
  - Presyncope [Unknown]
  - Dry mouth [Unknown]
  - Hypotension [Unknown]
  - Headache [Unknown]
  - Constipation [Unknown]
  - Dizziness [Unknown]
  - Abdominal pain [Unknown]
  - Tachycardia [Unknown]

NARRATIVE: CASE EVENT DATE: 20251001
